FAERS Safety Report 4990675-0 (Version None)
Quarter: 2006Q1

REPORT INFORMATION
  Report Type: 
  Country: None (occurrence: None)
  Receive Date: 20060314
  Receipt Date: 20060123
  Transmission Date: 20060701
  Serious: Yes (Hospitalization, Other)
  Sender: FDA-Public Use
  Company Number: 2005-02333

PATIENT
  Age: 63 Year
  Sex: Male
  Weight: 113.4 kg

DRUGS (7)
  1. VELCADE [Suspect]
     Indication: MULTIPLE MYELOMA
     Dosage: 2.95 MG
     Dates: start: 20050930, end: 20051007
  2. NEURONTIN [Concomitant]
  3. MULTIVITAMINS (ERGOCALCIFEROL, ASCORBIC ACID, PANTHENOL, NICOTINAMIDE, [Concomitant]
  4. LORTAB [Concomitant]
  5. OXYCONTIN [Concomitant]
  6. MARINOL [Concomitant]
  7. ZOMETA [Concomitant]

REACTIONS (1)
  - PANCREATITIS [None]
